FAERS Safety Report 4755823-6 (Version None)
Quarter: 2005Q3

REPORT INFORMATION
  Report Type: 
  Country: None (occurrence: None)
  Receive Date: 20050830
  Receipt Date: 20050308
  Transmission Date: 20060218
  Serious: Yes (Hospitalization)
  Sender: FDA-Public Use
  Company Number: US-BRISTOL-MYERS SQUIBB COMPANY-12891289

PATIENT
  Age: 53 Year
  Sex: Male

DRUGS (4)
  1. ERBITUX [Suspect]
     Indication: COLON CANCER METASTATIC
     Dosage: LOADING DOSE, 660 MG. REC'D 82 MG.
     Route: 042
     Dates: start: 20050308, end: 20050308
  2. BENADRYL [Concomitant]
     Indication: PREMEDICATION
     Route: 042
     Dates: start: 20050308, end: 20050308
  3. DECADRON [Concomitant]
     Route: 042
  4. ZOFRAN [Concomitant]
     Route: 042

REACTIONS (1)
  - HYPOTENSION [None]
